FAERS Safety Report 4921330-0 (Version None)
Quarter: 2006Q1

REPORT INFORMATION
  Report Type: 
  Country: None (occurrence: None)
  Receive Date: 20060224
  Receipt Date: 20060215
  Transmission Date: 20060701
  Serious: Yes (Other)
  Sender: FDA-Public Use
  Company Number: JP-JNJFOC-20060203680

PATIENT
  Age: 84 Year
  Sex: Female

DRUGS (7)
  1. TAVANIC [Suspect]
     Indication: URINARY TRACT INFECTION
     Route: 048
     Dates: start: 20060116, end: 20060116
  2. ISOPTIN [Concomitant]
     Route: 048
  3. TIMOPTIC [Concomitant]
     Route: 047
  4. MEDROL [Concomitant]
     Route: 048
  5. METHOTREXATE [Concomitant]
     Route: 042
  6. TAVOR [Concomitant]
     Route: 048
  7. AIRTAL [Concomitant]

REACTIONS (2)
  - BLINDNESS TRANSIENT [None]
  - VERTIGO [None]
